FAERS Safety Report 6785207-0 (Version None)
Quarter: 2010Q2

REPORT INFORMATION
  Report Type: 
  Country: None (occurrence: None)
  Receive Date: 20100622
  Receipt Date: 20100622
  Transmission Date: 20101027
  Serious: Yes (Disabling, Other)
  Sender: FDA-Public Use
  Company Number: None

PATIENT
  Sex: Male
  Weight: 95.2554 kg

DRUGS (3)
  1. DEPO-MEDROL [Suspect]
     Indication: MENISCUS LESION
  2. LIDOCAINE HCI 1% HOSPIRA [Suspect]
  3. MARCAINE [Suspect]

REACTIONS (11)
  - ARTHRALGIA [None]
  - ARTHRITIS [None]
  - ASPIRATION JOINT ABNORMAL [None]
  - COLD SWEAT [None]
  - DRUG INEFFECTIVE [None]
  - GAIT DISTURBANCE [None]
  - JOINT STIFFNESS [None]
  - OEDEMA PERIPHERAL [None]
  - SKIN DISCOLOURATION [None]
  - WALKING AID USER [None]
  - WEIGHT BEARING DIFFICULTY [None]
